FAERS Safety Report 6577166-0 (Version None)
Quarter: 2010Q1

REPORT INFORMATION
  Report Type: 
  Country: None (occurrence: None)
  Receive Date: 20100210
  Receipt Date: 20100128
  Transmission Date: 20100710
  Serious: Yes (Hospitalization)
  Sender: FDA-Public Use
  Company Number: PHHY2010AU05181

PATIENT
  Sex: Male

DRUGS (2)
  1. VOLTAREN [Suspect]
     Dosage: 25 MG, TID
     Route: 048
  2. CHAMPIX [Suspect]
     Indication: SMOKING CESSATION THERAPY
     Dosage: 1 MG, BID
     Route: 048

REACTIONS (8)
  - ARRHYTHMIA [None]
  - DIZZINESS [None]
  - DYSPNOEA [None]
  - FLUSHING [None]
  - INSOMNIA [None]
  - LOSS OF CONSCIOUSNESS [None]
  - SKIN DISCOLOURATION [None]
  - TREMOR [None]
